FAERS Safety Report 15271880 (Version 2)
Quarter: 2018Q3

REPORT INFORMATION
  Report Type: Spontaneous
  Country: US (occurrence: US)
  Receive Date: 20180813
  Receipt Date: 20180816
  Transmission Date: 20181010
  Serious: Yes (Hospitalization, Disabling)
  Sender: FDA-Public Use
  Company Number: US-NOVOPROD-615236

PATIENT
  Age: 69 Year
  Sex: Male

DRUGS (4)
  1. NOVOLOG [Suspect]
     Active Substance: INSULIN ASPART
     Indication: TYPE 2 DIABETES MELLITUS
     Dosage: SLIDING SCALE
     Route: 058
  2. VICTOZA [Suspect]
     Active Substance: LIRAGLUTIDE
     Indication: TYPE 2 DIABETES MELLITUS
     Dosage: UNK
     Route: 058
     Dates: start: 2016
  3. NOVOLOG [Suspect]
     Active Substance: INSULIN ASPART
     Dosage: SLIDING SCALE
     Route: 058
  4. VICTOZA [Suspect]
     Active Substance: LIRAGLUTIDE
     Dosage: 1.8 MG, QD
     Route: 058

REACTIONS (3)
  - Condition aggravated [Not Recovered/Not Resolved]
  - Disability [Not Recovered/Not Resolved]
  - Atrial fibrillation [Unknown]
